FAERS Safety Report 10221783 (Version 1)
Quarter: 2014Q2

REPORT INFORMATION
  Report Type: Spontaneous
  Country: JP (occurrence: JP)
  Receive Date: 20140606
  Receipt Date: 20140606
  Transmission Date: 20141212
  Serious: No
  Sender: FDA-Public Use
  Company Number: JP-BIOMARINAP-JP-2013-101528

PATIENT
  Age: 3 Year
  Sex: Male

DRUGS (2)
  1. NAGLAZYME [Suspect]
     Indication: MUCOPOLYSACCHARIDOSIS VI
     Dosage: 10 MG, QW
     Route: 041
     Dates: start: 20091130, end: 20100626
  2. NAGLAZYME [Suspect]
     Dosage: 15 MG, QW
     Route: 041
     Dates: start: 20100630

REACTIONS (1)
  - Hyperreflexia [Not Recovered/Not Resolved]
